FAERS Safety Report 7348397-7 (Version None)
Quarter: 2011Q1

REPORT INFORMATION
  Report Type: 
  Country: None (occurrence: None)
  Receive Date: 20110311
  Receipt Date: 20110302
  Transmission Date: 20110831
  Serious: Yes (Hospitalization, Other)
  Sender: FDA-Public Use
  Company Number: US-MERCK-1008USA04173

PATIENT
  Age: 75 Year
  Sex: Female
  Weight: 82 kg

DRUGS (2)
  1. FOSAMAX [Suspect]
     Indication: OSTEOPOROSIS PROPHYLAXIS
     Route: 048
     Dates: start: 20030101, end: 20080101
  2. FOSAMAX [Suspect]
     Route: 048
     Dates: start: 20030101

REACTIONS (56)
  - INAPPROPRIATE SCHEDULE OF DRUG ADMINISTRATION [None]
  - GASTROOESOPHAGEAL REFLUX DISEASE [None]
  - BRONCHIECTASIS [None]
  - FALL [None]
  - EAR DISCOMFORT [None]
  - HYPOAESTHESIA [None]
  - TRANSIENT ISCHAEMIC ATTACK [None]
  - OROPHARYNGEAL PAIN [None]
  - SKIN LESION [None]
  - PRODUCTIVE COUGH [None]
  - OEDEMA PERIPHERAL [None]
  - LUNG DISORDER [None]
  - HYPOXIA [None]
  - OSTEONECROSIS OF JAW [None]
  - ARTERIOSCLEROSIS CORONARY ARTERY [None]
  - INFECTIVE EXACERBATION OF CHRONIC OBSTRUCTIVE AIRWAYS DISEASE [None]
  - LUNG NEOPLASM [None]
  - PARAESTHESIA [None]
  - STOMATITIS [None]
  - ARTERIOSCLEROSIS [None]
  - CHRONIC OBSTRUCTIVE PULMONARY DISEASE [None]
  - ARTHRALGIA [None]
  - DYSPNOEA [None]
  - NERVOUSNESS [None]
  - PAIN IN JAW [None]
  - FLUID RETENTION [None]
  - ADVERSE DRUG REACTION [None]
  - RESTLESS LEGS SYNDROME [None]
  - WEIGHT FLUCTUATION [None]
  - CELLULITIS [None]
  - ABDOMINAL DISCOMFORT [None]
  - AORTIC ARTERIOSCLEROSIS [None]
  - EAR PAIN [None]
  - DYSPNOEA EXERTIONAL [None]
  - TOOTH ABSCESS [None]
  - RHINITIS ALLERGIC [None]
  - HEPATIC STEATOSIS [None]
  - DRY SKIN [None]
  - DERMATITIS [None]
  - SLEEP APNOEA SYNDROME [None]
  - MYALGIA [None]
  - RASH [None]
  - PRURITUS [None]
  - INCREASED TENDENCY TO BRUISE [None]
  - HEADACHE [None]
  - FATIGUE [None]
  - BACK PAIN [None]
  - BONE DENSITY DECREASED [None]
  - BURNING SENSATION [None]
  - RENAL FAILURE [None]
  - ABSCESS [None]
  - PERIPHERAL NERVE LESION [None]
  - BREAST DISCOMFORT [None]
  - DEPRESSION [None]
  - COUGH [None]
  - INSOMNIA [None]
